FAERS Safety Report 15968570 (Version 2)
Quarter: 2019Q1

REPORT INFORMATION
  Report Type: Spontaneous
  Country: NL (occurrence: NL)
  Receive Date: 20190215
  Receipt Date: 20190319
  Transmission Date: 20190418
  Serious: Yes (Hospitalization, Other)
  Sender: FDA-Public Use
  Company Number: NL-MYLANLABS-2019M1013374

PATIENT
  Age: 75 Year
  Sex: Male

DRUGS (3)
  1. THEOPHYLLINE /00012204/ [Suspect]
     Active Substance: THEOPHYLLINE SODIUM GLYCINATE
     Dosage: 250 MILLIGRAM (250 MG, TID   )
  2. TEMAZEPAM. [Concomitant]
     Active Substance: TEMAZEPAM
     Dosage: 10 MG, HS
  3. BACLOFEN. [Suspect]
     Active Substance: BACLOFEN
     Indication: PRODUCT USED FOR UNKNOWN INDICATION
     Dosage: 20 MG, QD
     Route: 065

REACTIONS (10)
  - Intestinal obstruction [Recovered/Resolved]
  - Hypotonia [None]
  - Intestinal pseudo-obstruction [Recovered/Resolved]
  - Gastric dilatation [Recovered/Resolved]
  - Haemangioma [Recovered/Resolved]
  - Blood folate decreased [Recovered/Resolved]
  - Aortic aneurysm [Recovered/Resolved]
  - Hypotonia [Recovered/Resolved]
  - Gastrointestinal ulcer [Recovered/Resolved]
  - Peristalsis visible [Recovered/Resolved]
